FAERS Safety Report 5139670-1 (Version None)
Quarter: 2006Q4

REPORT INFORMATION
  Report Type: 
  Country: None (occurrence: None)
  Receive Date: 20061024
  Receipt Date: 20061004
  Transmission Date: 20070319
  Serious: Yes (Death)
  Sender: FDA-Public Use
  Company Number: 2006SP003813

PATIENT
  Age: 48 Year
  Sex: Female
  Weight: 70 kg

DRUGS (5)
  1. PEG-INTRON [Suspect]
     Indication: HEPATITIS C
     Dosage: SEE IMAGE
     Dates: start: 20041205, end: 20050525
  2. REBETOL [Suspect]
     Indication: HEPATITIS C
     Dosage: 1000 MG; QD;
     Dates: start: 20041205, end: 20050525
  3. PREDNISONE TAB [Concomitant]
  4. AZATHIOPRINE [Concomitant]
  5. URSODEOXYCHOLIC ACID [Concomitant]

REACTIONS (1)
  - PYREXIA [None]
